FAERS Safety Report 7296916-1 (Version None)
Quarter: 2011Q1

REPORT INFORMATION
  Report Type: 
  Country: None (occurrence: None)
  Receive Date: 20110204
  Receipt Date: 20110121
  Transmission Date: 20110831
  Serious: Yes (Hospitalization)
  Sender: FDA-Public Use
  Company Number: 2011000380

PATIENT
  Age: 61 Year
  Sex: Male

DRUGS (11)
  1. INIPOMP (PANTOPRAZOLE) (TABLET) [Suspect]
     Indication: PRODUCT USED FOR UNKNOWN INDICATION
     Dosage: (40 MG, QD), ORAL
     Route: 048
     Dates: start: 20101210, end: 20101223
  2. SOLU-MEDROL [Concomitant]
  3. EXACYL (TRANEXAMIC ACID) (TABLET) [Suspect]
     Indication: PRODUCT USED FOR UNKNOWN INDICATION
     Dosage: (500 MG, QID), ORAL
     Route: 048
     Dates: start: 20101201
  4. KEPPRA [Suspect]
     Indication: PRODUCT USED FOR UNKNOWN INDICATION
     Dosage: (500 MG, BID), ORAL
     Route: 048
     Dates: start: 20101210
  5. CERTICAN [Concomitant]
  6. XANAX [Suspect]
     Indication: PRODUCT USED FOR UNKNOWN INDICATION
     Dosage: (0.75 MG, QD), ORAL
     Route: 048
     Dates: start: 20101213
  7. NEOPRAL [Concomitant]
  8. OLIMER (TABLET) [Suspect]
     Indication: PRODUCT USED FOR UNKNOWN INDICATION
     Dosage: (1 DOSE FORM), ORAL
     Route: 048
     Dates: end: 20101224
  9. TARCEVA [Suspect]
     Indication: PRODUCT USED FOR UNKNOWN INDICATION
     Dosage: (150 MG, QD), ORAL
     Route: 048
     Dates: start: 20101102
  10. DEPAKENE [Concomitant]
  11. AUGMENTIN [Suspect]
     Indication: PRODUCT USED FOR UNKNOWN INDICATION
     Dosage: (1 GM, TID), ORAL
     Route: 048
     Dates: start: 20101216, end: 20101223

REACTIONS (7)
  - DYSPHAGIA [None]
  - HAEMOPTYSIS [None]
  - GENERAL PHYSICAL HEALTH DETERIORATION [None]
  - OESOPHAGITIS [None]
  - LYMPHOPENIA [None]
  - HISTIOCYTOSIS HAEMATOPHAGIC [None]
  - THROMBOCYTOPENIA [None]
